FAERS Safety Report 14995912 (Version 1)
Quarter: 2018Q2

REPORT INFORMATION
  Report Type: Spontaneous
  Country: US (occurrence: US)
  Receive Date: 20180611
  Receipt Date: 20180611
  Transmission Date: 20180711
  Serious: Yes (Hospitalization)
  Sender: FDA-Public Use
  Company Number: US-VIVIMED-2018SP004416

PATIENT

DRUGS (7)
  1. CEFALEXIN [Suspect]
     Active Substance: CEPHALEXIN
     Dosage: FROM DAY-13, UNK
     Route: 065
  2. PIPERACILLIN/TAZOBACTAM [Suspect]
     Active Substance: PIPERACILLIN SODIUM\TAZOBACTAM SODIUM
     Indication: BACTERIAL PYELONEPHRITIS
     Dosage: FOM DAY-17 TO -14, UNK
     Route: 065
  3. CIPROFLOXACIN. [Suspect]
     Active Substance: CIPROFLOXACIN
     Indication: BACTERIAL PYELONEPHRITIS
     Dosage: FROM DAY-13 TO -9, UNK
     Route: 065
  4. METRONIDAZOLE. [Suspect]
     Active Substance: METRONIDAZOLE
     Indication: BACTERIAL PYELONEPHRITIS
     Dosage: FROM DAY-17 TO -14, UNK
     Route: 065
  5. CEFTRIAXONE. [Suspect]
     Active Substance: CEFTRIAXONE
     Indication: BACTERIAL PYELONEPHRITIS
     Dosage: FROM DAYS -30 TO-27, UNK
     Route: 065
  6. CEFALEXIN [Suspect]
     Active Substance: CEPHALEXIN
     Indication: BACTERIAL PYELONEPHRITIS
     Dosage: FROM DAY-26 TO -20, UNK
     Route: 065
  7. AMOXICILLIN SODIUM W/CLAVULANIC ACID [Suspect]
     Active Substance: AMOXICILLIN\CLAVULANATE POTASSIUM
     Indication: BACTERIAL PYELONEPHRITIS
     Dosage: FROM DAY-13 TO -9, UNK
     Route: 065

REACTIONS (2)
  - Hydronephrosis [Recovered/Resolved]
  - Mucormycosis [Recovered/Resolved]
